FAERS Safety Report 23272066 (Version 1)
Quarter: 2023Q4

REPORT INFORMATION
  Report Type: Spontaneous
  Country: HR (occurrence: HR)
  Receive Date: 20231207
  Receipt Date: 20231207
  Transmission Date: 20240109
  Serious: Yes (Life-Threatening)
  Sender: FDA-Public Use
  Company Number: None

PATIENT
  Age: 79 Year
  Sex: Male
  Weight: 85 kg

DRUGS (1)
  1. PAXLOVID [Suspect]
     Active Substance: NIRMATRELVIR\RITONAVIR
     Indication: COVID-19 treatment
     Dosage: [NIRMATRELVIR 300 MG]/[RITONAVIR 100 MG]; 2X/DAY
     Route: 048
     Dates: start: 20231115, end: 20231117

REACTIONS (4)
  - Drug ineffective [Recovering/Resolving]
  - Condition aggravated [Recovering/Resolving]
  - Oropharyngeal pain [Recovering/Resolving]
  - Pharyngeal swelling [Recovering/Resolving]

NARRATIVE: CASE EVENT DATE: 20231115
